FAERS Safety Report 12309922 (Version 1)
Quarter: 2016Q2

REPORT INFORMATION
  Report Type: Spontaneous
  Country: US (occurrence: None)
  Receive Date: 20160426
  Receipt Date: 20160426
  Transmission Date: 20160815
  Serious: No
  Sender: FDA-Public Use
  Company Number: None

PATIENT
  Age: 35 Year
  Sex: Female

DRUGS (1)
  1. HUMIRA [Suspect]
     Active Substance: ADALIMUMAB
     Indication: PSORIATIC ARTHROPATHY
     Dosage: 01/27/16 TO ON HOLD
     Route: 058
     Dates: start: 20160127

REACTIONS (5)
  - Tooth extraction [None]
  - Swelling [None]
  - Infection [None]
  - Weight increased [None]
  - Venous operation [None]

NARRATIVE: CASE EVENT DATE: 20160422
